FAERS Safety Report 9521258 (Version 1)
Quarter: 2013Q1

REPORT INFORMATION
  Report Type: Spontaneous
  Country: US (occurrence: None)
  Receive Date: 20130305
  Receipt Date: 20130305
  Transmission Date: 20140127
  Serious: Yes (Disabling)
  Sender: FDA-Public Use
  Company Number: 163-21880-12072059

PATIENT
  Age: 76 Year
  Sex: Male

DRUGS (2)
  1. REVLIMID [Suspect]
     Indication: MYELODYSPLASTIC SYNDROME
     Dosage: 1 IN 1 D
     Route: 048
     Dates: start: 201202, end: 2012
  2. METOPROLOL TARTRATE (METOPROLOL TARTRATE) (UNKNOWN) [Concomitant]

REACTIONS (2)
  - Myelodysplastic syndrome [None]
  - Disease progression [None]
